FAERS Safety Report 17259443 (Version 1)
Quarter: 2020Q1

REPORT INFORMATION
  Report Type: Spontaneous
  Country: US (occurrence: US)
  Receive Date: 20200110
  Receipt Date: 20200110
  Transmission Date: 20200409
  Serious: No
  Sender: FDA-Public Use
  Company Number: US-BAUSCH-BL-2019-065462

PATIENT
  Age: 33 Year
  Sex: Female

DRUGS (2)
  1. TRETINOIN. [Suspect]
     Active Substance: TRETINOIN
     Dosage: DOSE REDUCED TO 1 APPLICATION ONCE EVERY OTHER NIGHT
     Route: 061
     Dates: start: 201912, end: 20191214
  2. TRETINOIN. [Suspect]
     Active Substance: TRETINOIN
     Indication: ACNE
     Dosage: TOPICALLY TO THE FACE ONCE DAILY AT NIGHT
     Route: 061
     Dates: start: 20191203, end: 201912

REACTIONS (2)
  - Skin exfoliation [Not Recovered/Not Resolved]
  - Alopecia [Not Recovered/Not Resolved]

NARRATIVE: CASE EVENT DATE: 201912
